FAERS Safety Report 8895815 (Version 1)
Quarter: 2012Q4

REPORT INFORMATION
  Report Type: 
  Country: NL (occurrence: NL)
  Receive Date: 20121108
  Receipt Date: 20121108
  Transmission Date: 20130627
  Serious: Yes (Death, Life-Threatening)
  Sender: FDA-Public Use
  Company Number: NL-ACTELION-A-CH2012-73632

PATIENT
  Age: 81 Year
  Sex: Female
  Weight: 70 kg

DRUGS (9)
  1. TRACLEER [Suspect]
     Indication: PULMONARY HYPERTENSION
     Dosage: 125 mg, bid
     Route: 048
     Dates: start: 20071201, end: 201210
  2. TRACLEER [Suspect]
     Dosage: 62.5 mg, bid
     Route: 048
     Dates: start: 20071101, end: 20071130
  3. SILDENAFIL [Concomitant]
     Dosage: UNK
     Dates: start: 20081001, end: 201210
  4. BUMETANIDE [Concomitant]
     Dosage: UNK
     Dates: start: 20101201, end: 201210
  5. SPIRONOLACTONE [Concomitant]
     Dosage: UNK
     Dates: start: 20110201, end: 201210
  6. ACETYLSALICYLIC ACID [Concomitant]
     Dosage: UNK
     Dates: start: 19920101
  7. SIMVASTATIN [Concomitant]
     Dosage: UNK
     Dates: start: 19920101, end: 201210
  8. DIGOXIN [Concomitant]
     Dosage: UNK
     Dates: start: 20090622, end: 201210
  9. ACENOCOUMAROL [Concomitant]
     Dosage: UNK
     Dates: start: 20060101, end: 201210

REACTIONS (7)
  - Euthanasia [Fatal]
  - Sedation [Fatal]
  - Palliative care [Fatal]
  - Pulmonary hypertension [Fatal]
  - Cardiac failure [Fatal]
  - Dyspnoea [Fatal]
  - Depression [Unknown]
